FAERS Safety Report 14395495 (Version 2)
Quarter: 2018Q3

REPORT INFORMATION
  Report Type: Spontaneous
  Country: GB (occurrence: GB)
  Receive Date: 20180116
  Receipt Date: 20180919
  Transmission Date: 20181010
  Serious: Yes (Disabling)
  Sender: FDA-Public Use
  Company Number: GB-TEVA-2018-GB-844976

PATIENT
  Age: 59 Year
  Sex: Female
  Weight: 74 kg

DRUGS (17)
  1. PARACETAMOL [Concomitant]
     Active Substance: ACETAMINOPHEN
     Indication: PAIN
     Dosage: UP TO 2 FOUR TIMES A DAY.
     Route: 065
     Dates: start: 20160119
  2. FEXOFENADINE [Concomitant]
     Active Substance: FEXOFENADINE\FEXOFENADINE HYDROCHLORIDE
     Dosage: TO BE USED WHEN TAKING ANTIBIOTICS.
     Dates: start: 20170703
  3. ALENDRONIC ACID [Concomitant]
     Active Substance: ALENDRONIC ACID
     Dates: start: 20160119, end: 20171113
  4. PANTOPRAZOLE [Suspect]
     Active Substance: PANTOPRAZOLE
     Indication: GASTROOESOPHAGEAL REFLUX DISEASE
     Route: 048
     Dates: start: 20170302, end: 20171201
  5. VOLTAROL [Concomitant]
     Active Substance: DICLOFENAC SODIUM
     Dates: start: 20171113, end: 20171127
  6. SALBUTAMOL [Concomitant]
     Active Substance: ALBUTEROL
     Dosage: 1?2 PUFFS UP TO FOUR TIMES A DAY.
     Route: 055
     Dates: start: 20170302
  7. DOXYCYCLINE MONOHYDRATE [Concomitant]
     Active Substance: DOXYCYCLINE
     Dates: start: 20170321
  8. NYSTATIN. [Concomitant]
     Active Substance: NYSTATIN
     Dosage: USE AS DIRECTED
     Dates: start: 20171107, end: 20171128
  9. PRIMECROWN SODIUM CHLORIDE [Concomitant]
     Dates: start: 20160119
  10. OXYBUTYNIN. [Concomitant]
     Active Substance: OXYBUTYNIN CHLORIDE
     Dosage: APPLY TO CLEAN DRY AND NON HAIRY SKIN EVERY THR...
     Dates: start: 20170302
  11. BUDESONIDE. [Concomitant]
     Active Substance: BUDESONIDE
     Route: 055
     Dates: start: 20170913
  12. ACLIDINIUM [Concomitant]
     Active Substance: ACLIDINIUM BROMIDE
     Dates: start: 20170302
  13. QVAR [Concomitant]
     Active Substance: BECLOMETHASONE DIPROPIONATE
     Dates: start: 20170720
  14. GAVISCON ADVANCE [Concomitant]
     Active Substance: POTASSIUM BICARBONATE\SODIUM ALGINATE
     Dosage: AT NIGHT
  15. INDACATEROL [Concomitant]
     Active Substance: INDACATEROL
     Dates: start: 20170302
  16. CARBOCISTEINE [Concomitant]
     Active Substance: CARBOCYSTEINE
     Indication: SPUTUM ABNORMAL
     Dates: start: 20160119
  17. FLUCONAZOLE. [Concomitant]
     Active Substance: FLUCONAZOLE
     Dates: start: 20171201

REACTIONS (1)
  - Back pain [Recovered/Resolved]

NARRATIVE: CASE EVENT DATE: 20171201
